FAERS Safety Report 6239932-0 (Version None)
Quarter: 2009Q2

REPORT INFORMATION
  Report Type: 
  Country: None (occurrence: None)
  Receive Date: 20090623
  Receipt Date: 20090609
  Transmission Date: 20091009
  Serious: Yes (Hospitalization)
  Sender: FDA-Public Use
  Company Number: FR-BAYER-200922898GPV

PATIENT
  Age: 18 Year
  Sex: Female

DRUGS (1)
  1. YASMIN [Suspect]
     Indication: ORAL CONTRACEPTION
     Dosage: TOTAL DAILY DOSE: 1 DF
     Route: 048
     Dates: start: 20090101

REACTIONS (12)
  - ANTIPHOSPHOLIPID SYNDROME [None]
  - BRAIN OEDEMA [None]
  - CEREBRAL HAEMORRHAGE [None]
  - CEREBRAL INFARCTION [None]
  - CEREBRAL VENOUS THROMBOSIS [None]
  - CONVULSION [None]
  - DYSLIPIDAEMIA [None]
  - HAEMORRHAGIC TRANSFORMATION STROKE [None]
  - HEADACHE [None]
  - HEMIANOPIA HOMONYMOUS [None]
  - VISUAL IMPAIRMENT [None]
  - VOMITING [None]
